FAERS Safety Report 19510842 (Version 2)
Quarter: 2021Q3

REPORT INFORMATION
  Report Type: Report from Study
  Country: CA (occurrence: CA)
  Receive Date: 20210709
  Receipt Date: 20210729
  Transmission Date: 20211014
  Serious: Yes (Hospitalization)
  Sender: FDA-Public Use
  Company Number: CA-JNJFOC-20210639928

PATIENT
  Age: 6 Year
  Sex: Male
  Weight: 16 kg

DRUGS (1)
  1. REMICADE [Suspect]
     Active Substance: INFLIXIMAB
     Indication: COLITIS ULCERATIVE
     Dosage: ON 23?JUL?2021, THE PATIENT RECEIVED 14TH INFLIXIMAB INFUSION OF 300 MG
     Route: 042
     Dates: start: 20201001

REACTIONS (1)
  - Colitis ulcerative [Unknown]
